FAERS Safety Report 25730902 (Version 1)
Quarter: 2025Q3

REPORT INFORMATION
  Report Type: Spontaneous
  Country: US (occurrence: None)
  Receive Date: 20250826
  Receipt Date: 20250826
  Transmission Date: 20251020
  Serious: Yes (Life-Threatening, Hospitalization, Disabling)
  Sender: FDA-CTU
  Company Number: None

PATIENT
  Age: 25 Year
  Sex: Male
  Weight: 65.7 kg

DRUGS (3)
  1. PALIPERIDONE [Suspect]
     Active Substance: PALIPERIDONE
     Indication: Schizophrenia
     Route: 042
     Dates: start: 20160202, end: 20160320
  2. MIRTAZAPINE [Suspect]
     Active Substance: MIRTAZAPINE
     Indication: Schizophrenia
     Route: 048
     Dates: start: 20160202, end: 20160320
  3. OLANZAPINE [Suspect]
     Active Substance: OLANZAPINE

REACTIONS (7)
  - Increased appetite [None]
  - Fatigue [None]
  - Suicidal ideation [None]
  - Anhedonia [None]
  - Apathy [None]
  - Adverse drug reaction [None]
  - Somatic symptom disorder [None]

NARRATIVE: CASE EVENT DATE: 20160208
